FAERS Safety Report 8886046 (Version 2)
Quarter: 2013Q2

REPORT INFORMATION
  Report Type: Spontaneous
  Country: FR (occurrence: FR)
  Receive Date: 20121105
  Receipt Date: 20130613
  Transmission Date: 20140414
  Serious: Yes (Life-Threatening)
  Sender: FDA-Public Use
  Company Number: FR-ASTRAZENECA-2012SE82891

PATIENT
  Age: 18866 Day
  Sex: Male

DRUGS (12)
  1. DIPRIVAN [Suspect]
     Indication: ANAESTHESIA
     Route: 042
  2. DIPRIVAN [Suspect]
     Indication: ANAESTHESIA
     Route: 042
     Dates: start: 20120903, end: 20120903
  3. CELOCURINE [Suspect]
     Indication: ANAESTHESIA
     Route: 042
     Dates: start: 20120903, end: 20120903
  4. ULTIVA [Concomitant]
     Indication: ANAESTHESIA
  5. NIMBEX [Concomitant]
     Indication: ANAESTHESIA
  6. CEFAZOLIN [Concomitant]
     Indication: ANTIBIOTIC PROPHYLAXIS
  7. REMIFENTANIL [Concomitant]
  8. PROPOFOL [Concomitant]
  9. MIDAZOLAM [Concomitant]
  10. MORPHINIC DRUGS [Concomitant]
  11. BETADINE [Concomitant]
  12. CHLORHEXIDINE [Concomitant]

REACTIONS (1)
  - Anaphylactic shock [Recovered/Resolved]
